FAERS Safety Report 7490790-6 (Version None)
Quarter: 2011Q2

REPORT INFORMATION
  Report Type: 
  Country: None (occurrence: None)
  Receive Date: 20110519
  Receipt Date: 20081009
  Transmission Date: 20111010
  Serious: Yes (Life-Threatening, Hospitalization, Other)
  Sender: FDA-Public Use
  Company Number: US-BAYER-200836339NA

PATIENT
  Age: 67 Year
  Sex: Female
  Weight: 78.005 kg

DRUGS (32)
  1. TRASYLOL [Suspect]
     Dosage: 199CC FOLLOWED BY A 500CC/HR INFUSION
     Dates: start: 20040702, end: 20040702
  2. LISINOPRIL [Concomitant]
     Dosage: 10 MG, QD
     Route: 048
  3. NITROGLYCERIN [Concomitant]
     Route: 060
  4. MIDAZOLAM HCL [Concomitant]
     Indication: ANAESTHESIA
     Dosage: 7 MG, UNK
     Route: 042
     Dates: start: 20040702
  5. ACETYLSALICYLIC ACID SRT [Concomitant]
     Dosage: 325 MG, QD
     Route: 048
     Dates: start: 19940901
  6. PLAVIX [Concomitant]
     Dosage: 75 MG, QD
     Route: 048
     Dates: start: 20040614, end: 20040628
  7. LIDOCAINE [Concomitant]
     Indication: ARRHYTHMIA PROPHYLAXIS
     Dosage: 100 MG, UNK
     Route: 042
     Dates: start: 20040702
  8. ATENOLOL [Concomitant]
     Indication: HYPERTENSION
     Dosage: 25 MG, BID
     Route: 048
     Dates: start: 20040608
  9. AMIODARONE HCL [Concomitant]
     Dosage: UNK UNK, QD
     Route: 048
  10. PROTAMINE SULFATE [Concomitant]
     Indication: HEPARIN NEUTRALISATION THERAPY
     Dosage: 400 MG, UNK
     Dates: start: 20040702
  11. ACETYLSALICYLIC ACID SRT [Concomitant]
     Dosage: 81 MG, QD
     Route: 048
  12. EPHEDRINE SUL CAP [Concomitant]
     Indication: PROPHYLAXIS
     Dosage: 5 MG, X 4 DOSES, PRN
     Route: 042
     Dates: start: 20040702
  13. TRASYLOL [Suspect]
     Indication: CORONARY ARTERY BYPASS
     Dosage: INITIAL TEST DOSE OF 1 ML
     Dates: start: 20040702, end: 20040702
  14. COREG [Concomitant]
     Dosage: 12.5 MG, BID
     Route: 048
  15. HEPARIN [Concomitant]
     Indication: ANTICOAGULANT THERAPY
     Dosage: 10000 U, UNK
     Route: 042
     Dates: start: 20040702
  16. TRIAMTERENE AND HYDROCHLOROTHIAZIDE [Concomitant]
     Indication: HYPERTENSION
     Dosage: 37.5-25MG QD, LONG TERM
     Route: 048
     Dates: start: 19880301
  17. VANCOMYCIN [Concomitant]
     Dosage: 1 G, IRRIGATION
     Route: 042
     Dates: start: 20040702
  18. EPINEPHRINE [Concomitant]
     Indication: HYPOTENSION
     Dosage: 0.03-0.1 MCG/KG/MIN
     Route: 042
     Dates: start: 20040702
  19. PROSTIGMIN BROMIDE [Concomitant]
     Indication: ANAESTHESIA REVERSAL
     Dosage: 0.5 MG, ONCE
     Route: 042
     Dates: start: 20040702
  20. COUMADIN [Concomitant]
     Dosage: 3 MG, QD
     Route: 048
  21. HEPARIN [Concomitant]
     Dosage: 24000 UNITS
     Route: 042
     Dates: start: 20040702
  22. ETOMIDATE [Concomitant]
     Indication: ANAESTHESIA
     Dosage: 20 MG, UNK
     Route: 042
     Dates: start: 20040702
  23. NAPROXEN [Concomitant]
     Dosage: 550 MG, BID
     Route: 048
     Dates: start: 20030101
  24. ISOFLURANE [Concomitant]
     Indication: ANAESTHESIA
     Dosage: 0.25-0.5%, INHALANT
     Dates: start: 20040702
  25. NITROGLYCERIN [Concomitant]
     Indication: PULMONARY ARTERIAL PRESSURE INCREASED
     Dosage: 50 MCG
     Route: 042
     Dates: start: 20040702
  26. LASIX [Concomitant]
     Dosage: UNK
     Route: 042
     Dates: start: 20040702
  27. PAPAVERINE [PAPAVERINE] [Concomitant]
     Dosage: UNK MG, UNK
     Route: 061
     Dates: start: 20040702
  28. THROMBIN LOCAL SOLUTION [Concomitant]
     Dosage: 15000 UNITS
     Route: 061
     Dates: start: 20040702
  29. BENADRYL [Concomitant]
     Indication: ANAPHYLAXIS PROPHYLAXIS
     Dosage: 50 MG, ONCE
     Route: 042
     Dates: start: 20040702
  30. SUFENTANIL CITRATE [Concomitant]
     Indication: ANAESTHESIA
     Dosage: 250 MCG OVER 6 HOURS
     Route: 042
     Dates: start: 20040702
  31. VECURONIUM BROMIDE [Concomitant]
     Dosage: 30 UNK, UNK
     Route: 042
     Dates: start: 20040702
  32. CEFUROXIME [Concomitant]
     Indication: INFECTION PROPHYLAXIS
     Dosage: 1.5 G, UNK
     Route: 042
     Dates: start: 20040702

REACTIONS (36)
  - STRESS [None]
  - GAIT DISTURBANCE [None]
  - PAIN [None]
  - INFECTION [None]
  - FEAR [None]
  - AGEUSIA [None]
  - UNEVALUABLE EVENT [None]
  - THROMBOSIS [None]
  - HAEMORRHOIDAL HAEMORRHAGE [None]
  - BRAIN INJURY [None]
  - RENAL INJURY [None]
  - DYSGEUSIA [None]
  - ASTHENIA [None]
  - INJURY [None]
  - CARDIAC ARREST [None]
  - ADVERSE EVENT [None]
  - VASCULAR INJURY [None]
  - HEART INJURY [None]
  - NERVOUS SYSTEM DISORDER [None]
  - MULTI-ORGAN FAILURE [None]
  - MENTAL DISORDER [None]
  - COAGULOPATHY [None]
  - RENAL IMPAIRMENT [None]
  - BALANCE DISORDER [None]
  - DEPRESSION [None]
  - ANHEDONIA [None]
  - ANXIETY [None]
  - GRAFT THROMBOSIS [None]
  - CARDIAC DISORDER [None]
  - GASTROINTESTINAL INJURY [None]
  - IMMUNODEFICIENCY [None]
  - WEIGHT DECREASED [None]
  - RENAL FAILURE [None]
  - DECREASED APPETITE [None]
  - PAROSMIA [None]
  - EMOTIONAL DISTRESS [None]
